FAERS Safety Report 24977462 (Version 1)
Quarter: 2025Q1

REPORT INFORMATION
  Report Type: Spontaneous
  Country: CN (occurrence: CN)
  Receive Date: 20250217
  Receipt Date: 20250217
  Transmission Date: 20250409
  Serious: Yes (Other)
  Sender: PAREXEL
  Company Number: CN-SHANGHAI JUNSHI BIOSCIENCES CO., LTD.-CN2025013001

PATIENT

DRUGS (2)
  1. TORIPALIMAB [Suspect]
     Active Substance: TORIPALIMAB
     Indication: Squamous cell carcinoma of lung
     Dosage: DOSAGE UNKNOWN, Q3W, 7 CYCLES OF ADMINISTRATION
     Route: 041
     Dates: start: 20210323
  2. TISLELIZUMAB [Concomitant]
     Active Substance: TISLELIZUMAB
     Indication: Squamous cell carcinoma of lung
     Dosage: DOSAGE UNKNOWN, Q3W, 2 CYCLES OF ADMINISTRATION
     Route: 041
     Dates: start: 20210929

REACTIONS (1)
  - Myelosuppression [Unknown]
